FAERS Safety Report 10051596 (Version 1)
Quarter: 2014Q1

REPORT INFORMATION
  Report Type: Spontaneous
  Country: US (occurrence: None)
  Receive Date: 20140331
  Receipt Date: 20140331
  Transmission Date: 20141002
  Serious: Yes (Death)
  Sender: FDA-Public Use
  Company Number: 2014P1002476

PATIENT
  Age: 58 Year
  Sex: Female

DRUGS (6)
  1. HYDROCORTISONE [Suspect]
     Indication: DIARRHOEA
     Route: 042
  2. HYDROCORTISONE [Suspect]
     Indication: WEIGHT DECREASED
     Route: 042
  3. INFLIXIMAB [Suspect]
     Indication: DIARRHOEA
  4. INFLIXIMAB [Suspect]
     Indication: WEIGHT DECREASED
  5. BUDESONIDE [Suspect]
     Indication: DIARRHOEA
     Route: 048
  6. BUDESONIDE [Suspect]
     Indication: WEIGHT DECREASED
     Route: 048

REACTIONS (18)
  - Respiratory distress [None]
  - Hypoxia [None]
  - Coma [None]
  - Bradycardia [None]
  - Opportunistic infection [None]
  - Hypotension [None]
  - Pleural effusion [None]
  - Generalised oedema [None]
  - Diarrhoea [None]
  - Ileal ulcer [None]
  - Cytomegalovirus infection [None]
  - Skin infection [None]
  - Fusarium infection [None]
  - Pneumocystis jirovecii pneumonia [None]
  - Klebsiella infection [None]
  - Bronchial secretion retention [None]
  - Pupils unequal [None]
  - Immunosuppression [None]
